FAERS Safety Report 8554779-8 (Version None)
Quarter: 2012Q3

REPORT INFORMATION
  Report Type: 
  Country: None (occurrence: None)
  Receive Date: 20120731
  Receipt Date: 20120720
  Transmission Date: 20120928
  Serious: Yes (Other)
  Sender: FDA-Public Use
  Company Number: US-ACTELION-A-US2012-69124

PATIENT
  Age: 29 Year
  Sex: Male

DRUGS (3)
  1. EPOPROSTENOL SODIUM [Suspect]
     Indication: PULMONARY ARTERIAL HYPERTENSION
     Dosage: 2 NG/KG, PER MIN
     Route: 042
  2. EPOPROSTENOL SODIUM [Suspect]
     Dosage: 26 NG/KG, PER MIN
     Route: 048
     Dates: start: 20120309
  3. COUMADIN [Concomitant]

REACTIONS (1)
  - DEVICE ALARM ISSUE [None]
